FAERS Safety Report 6244054-9 (Version None)
Quarter: 2009Q2

REPORT INFORMATION
  Report Type: 
  Country: None (occurrence: None)
  Receive Date: 20090619
  Receipt Date: 20090520
  Transmission Date: 20091009
  Serious: No
  Sender: FDA-Public Use
  Company Number: SPV1-2009-01039

PATIENT
  Age: 29 Year
  Sex: Male

DRUGS (2)
  1. VYVANSE [Suspect]
     Indication: DRUG USE FOR UNKNOWN INDICATION
     Dosage: 50 MG, 1X/DAY:QD, ORAL
     Route: 048
     Dates: start: 20090516
  2. PROZAC [Concomitant]

REACTIONS (9)
  - ANOREXIA [None]
  - DEPRESSION [None]
  - DISTURBANCE IN ATTENTION [None]
  - HYPERHIDROSIS [None]
  - INSOMNIA [None]
  - NEGATIVE THOUGHTS [None]
  - SPEECH DISORDER [None]
  - TACHYPHRENIA [None]
  - WEIGHT DECREASED [None]
